FAERS Safety Report 13877156 (Version 1)
Quarter: 2017Q3

REPORT INFORMATION
  Report Type: Report from Study
  Country: ES (occurrence: ES)
  Receive Date: 20170817
  Receipt Date: 20170817
  Transmission Date: 20171127
  Serious: Yes (Other)
  Sender: FDA-Public Use
  Company Number: ES-SUN PHARMACEUTICAL INDUSTRIES LTD-2017R1-147760

PATIENT
  Age: 71 Year
  Sex: Male

DRUGS (3)
  1. ETHAMBUTOL [Suspect]
     Active Substance: ETHAMBUTOL HYDROCHLORIDE
     Indication: DISSEMINATED TUBERCULOSIS
     Route: 065
  2. PYRAZINAMIDE. [Suspect]
     Active Substance: PYRAZINAMIDE
     Indication: DISSEMINATED TUBERCULOSIS
     Route: 065
  3. ISONIAZID. [Suspect]
     Active Substance: ISONIAZID
     Indication: DISSEMINATED TUBERCULOSIS
     Route: 065

REACTIONS (3)
  - Ototoxicity [Recovering/Resolving]
  - Deafness neurosensory [Recovering/Resolving]
  - Hyporeflexia [Recovering/Resolving]
